FAERS Safety Report 7346191-4 (Version None)
Quarter: 2011Q1

REPORT INFORMATION
  Report Type: 
  Country: None (occurrence: None)
  Receive Date: 20110311
  Receipt Date: 20110301
  Transmission Date: 20110831
  Serious: Yes (Death)
  Sender: FDA-Public Use
  Company Number: GB-CELGENEUS-167-21880-11030079

PATIENT
  Age: 40 Year
  Sex: Male

DRUGS (4)
  1. CYTARABINE [Concomitant]
     Route: 065
  2. ETOPOSIDE [Concomitant]
     Route: 065
  3. REVLIMID [Suspect]
     Route: 048
  4. DAUNORUBICIN [Concomitant]
     Route: 065

REACTIONS (3)
  - TREATMENT FAILURE [None]
  - SEPSIS [None]
  - GASTROINTESTINAL HAEMORRHAGE [None]
